FAERS Safety Report 13915371 (Version 2)
Quarter: 2017Q3

REPORT INFORMATION
  Report Type: Spontaneous
  Country: US (occurrence: US)
  Receive Date: 20170829
  Receipt Date: 20170906
  Transmission Date: 20171127
  Serious: No
  Sender: FDA-Public Use
  Company Number: US-LUNDBECK-DKLU2035814

PATIENT
  Age: 81 Year
  Sex: Female

DRUGS (3)
  1. NORTHERA [Suspect]
     Active Substance: DROXIDOPA
     Indication: PARKINSON^S DISEASE
     Dosage: TITRATION SCHEDULE C (TITRATION COMPLETE)
     Route: 048
     Dates: start: 20170811
  2. NORTHERA [Suspect]
     Active Substance: DROXIDOPA
     Indication: ORTHOSTATIC HYPOTENSION
  3. NORTHERA [Suspect]
     Active Substance: DROXIDOPA
     Indication: DIZZINESS

REACTIONS (6)
  - Pruritus [Unknown]
  - Dizziness [Unknown]
  - Malaise [Recovering/Resolving]
  - Fatigue [Unknown]
  - Excessive cerumen production [Unknown]
  - Rash [Unknown]

NARRATIVE: CASE EVENT DATE: 20170813
